FAERS Safety Report 4577077-6 (Version None)
Quarter: 2005Q1

REPORT INFORMATION
  Report Type: 
  Country: None (occurrence: None)
  Receive Date: 20050208
  Receipt Date: 20050131
  Transmission Date: 20050727
  Serious: Yes (Hospitalization, Other)
  Sender: FDA-Public Use
  Company Number: 2005022906

PATIENT
  Sex: Female
  Weight: 101.6057 kg

DRUGS (24)
  1. LISTERINE ANTISEPTIC MOUTHWASH (MENTHOL, METHYL SALICYLATE, EUCALYPTOL [Suspect]
     Indication: DENTAL DISORDER PROPHYLAXIS
     Dosage: SMALL AMOUNT 5-14 TIMES WEEKLY, ORAL TOPICAL
     Route: 048
  2. EFFERDENT ANTI-BACTERIAL DENTURE CLEANSER (SODIUM PERBORATE MONOHYDRAT [Suspect]
     Indication: DENTURE WEARER
     Dosage: ORAL TOPICAL
     Route: 048
  3. ACETYLSALICYLIC ACID SRT [Concomitant]
  4. VALDECOXIB [Concomitant]
  5. CALCIUM (CALCIUM) [Concomitant]
  6. ERGOCALCIFEROL (ERGOCALCIFEROL) [Concomitant]
  7. CENTRUM (MINERALS NOS, VITAMINS NOS) [Concomitant]
  8. CENTRUM SILVER (ASCORBIC ACID,  CALCIUM, MINERALS NOS, RETINOL, TOCOPH [Concomitant]
  9. FERROUS SULFATE TAB [Concomitant]
  10. FUROSEMIDE [Concomitant]
  11. GLIPIZIDE [Concomitant]
  12. HYDROCHLOROTHIAZIDE [Concomitant]
  13. IMIPRAMINE [Concomitant]
  14. LOMOTIL [Concomitant]
  15. MECLOZINE (MECLOZINE) [Concomitant]
  16. GABAPENTIN [Concomitant]
  17. PRAVASTATIN SODIUM [Concomitant]
  18. CONJUGATED ESTROGENS [Concomitant]
  19. PANTOPRAZOLE (PANTOPRAZOLE) [Concomitant]
  20. VERAPAMIL [Concomitant]
  21. CETIRIZINE HCL [Concomitant]
  22. SERETIDE MITE (FLUTICASONE PROPIONATE, SALMETEROL XINAFOATE) [Concomitant]
  23. SALBUTAMOL (SALBUTAMOL) [Concomitant]
  24. IPRATROPIUM BROMIDE [Concomitant]

REACTIONS (8)
  - BURNING SENSATION [None]
  - FALL [None]
  - INTERVERTEBRAL DISC COMPRESSION [None]
  - LOSS OF CONSCIOUSNESS [None]
  - NERVE COMPRESSION [None]
  - OEDEMA PERIPHERAL [None]
  - PIGMENTATION DISORDER [None]
  - URINARY TRACT INFECTION [None]
